FAERS Safety Report 13924091 (Version 1)
Quarter: 2017Q3

REPORT INFORMATION
  Report Type: Spontaneous
  Country: US (occurrence: None)
  Receive Date: 20170830
  Receipt Date: 20170830
  Transmission Date: 20171127
  Serious: Yes (Hospitalization)
  Sender: FDA-Public Use
  Company Number: None

PATIENT
  Age: 55 Year
  Sex: Female
  Weight: 141.52 kg

DRUGS (1)
  1. TALTZ [Suspect]
     Active Substance: IXEKIZUMAB
     Indication: PYODERMA GANGRENOSUM
     Route: 058
     Dates: start: 20170717, end: 20170817

REACTIONS (2)
  - Superinfection [None]
  - Pyoderma gangrenosum [None]

NARRATIVE: CASE EVENT DATE: 20170804
